FAERS Safety Report 26110359 (Version 1)
Quarter: 2025Q4

REPORT INFORMATION
  Report Type: Report from Study
  Country: EU (occurrence: EU)
  Receive Date: 20251202
  Receipt Date: 20251202
  Transmission Date: 20260118
  Serious: Yes (Hospitalization)
  Sender: CELLTRION
  Company Number: EU-CELLTRION INC.-2023CZ000834

PATIENT

DRUGS (2)
  1. ADALIMUMAB-AATY [Suspect]
     Active Substance: ADALIMUMAB-AATY
     Indication: Crohn^s disease
  2. ADALIMUMAB-AATY [Suspect]
     Active Substance: ADALIMUMAB-AATY

REACTIONS (4)
  - Injury [Recovered/Resolved]
  - Inflammation [Recovered/Resolved]
  - Infection [Recovered/Resolved]
  - Nasopharyngitis [Recovered/Resolved]

NARRATIVE: CASE EVENT DATE: 20221205
